FAERS Safety Report 12182891 (Version 1)
Quarter: 2016Q1

REPORT INFORMATION
  Report Type: Spontaneous
  Country: US (occurrence: US)
  Receive Date: 20160316
  Receipt Date: 20160316
  Transmission Date: 20160526
  Serious: No
  Sender: FDA-Public Use
  Company Number: US-BAYER-2016-041320

PATIENT
  Age: 68 Year
  Sex: Female
  Weight: 58.96 kg

DRUGS (1)
  1. CHILDREN CLARITIN ALLERGY [Suspect]
     Active Substance: LORATADINE
     Indication: ARTHROPOD STING
     Dosage: 1 DF, ONCE
     Route: 048
     Dates: start: 20160229, end: 20160229

REACTIONS (3)
  - Therapeutic response unexpected [None]
  - Nausea [Recovered/Resolved]
  - Product use issue [None]

NARRATIVE: CASE EVENT DATE: 20160229
